FAERS Safety Report 10444215 (Version 1)
Quarter: 2014Q3

REPORT INFORMATION
  Report Type: Spontaneous
  Country: CA (occurrence: None)
  Receive Date: 20140909
  Receipt Date: 20140909
  Transmission Date: 20150326
  Serious: No
  Sender: FDA-Public Use
  Company Number: None

PATIENT
  Age: 59 Year
  Sex: Female
  Weight: 73.8 kg

DRUGS (2)
  1. CYTARABINE. [Suspect]
     Active Substance: CYTARABINE
     Dates: end: 20140813
  2. IDARUBICIN [Suspect]
     Active Substance: IDARUBICIN
     Dates: end: 20140812

REACTIONS (6)
  - Presyncope [None]
  - Unresponsive to stimuli [None]
  - Cardio-respiratory arrest [None]
  - Chills [None]
  - Bacterial sepsis [None]
  - Tremor [None]

NARRATIVE: CASE EVENT DATE: 20140822
